FAERS Safety Report 7890426-6 (Version None)
Quarter: 2011Q4

REPORT INFORMATION
  Report Type: 
  Country: None (occurrence: None)
  Receive Date: 20111103
  Receipt Date: 20110721
  Transmission Date: 20120403
  Serious: No
  Sender: FDA-Public Use
  Company Number: US-AMGEN-USASP2011037166

PATIENT
  Age: 60 Year
  Sex: Female
  Weight: 65.76 kg

DRUGS (9)
  1. OMEGA 3                            /00931501/ [Concomitant]
     Dosage: 1000 MG, UNK
     Route: 048
  2. CITRACAL + D                       /01438101/ [Concomitant]
     Route: 048
  3. CALCIUM [Concomitant]
     Route: 048
  4. CELLCEPT [Concomitant]
     Dosage: 250 MG, UNK
     Route: 048
  5. ATENOLOL [Concomitant]
     Dosage: 25 MG, UNK
     Route: 048
  6. NIFEDIPINE [Concomitant]
     Dosage: 10 MG, UNK
     Route: 048
  7. GLUCOSAMINE + CHONDROITIN          /01430901/ [Concomitant]
     Route: 048
  8. ENBREL [Suspect]
     Indication: RHEUMATOID ARTHRITIS
     Dosage: 50 MG, QWK
     Route: 058
  9. CENTRUM                            /00554501/ [Concomitant]
     Route: 048

REACTIONS (3)
  - SWELLING FACE [None]
  - DRUG INEFFECTIVE [None]
  - EYE SWELLING [None]
